FAERS Safety Report 13654910 (Version 1)
Quarter: 2017Q2

REPORT INFORMATION
  Report Type: Spontaneous
  Country: US (occurrence: US)
  Receive Date: 20170615
  Receipt Date: 20170615
  Transmission Date: 20170830
  Serious: Yes (Other)
  Sender: FDA-Public Use
  Company Number: US-SHIRE-US201712930

PATIENT
  Sex: Male

DRUGS (2)
  1. LIALDA [Suspect]
     Active Substance: MESALAMINE
     Indication: PRODUCT USED FOR UNKNOWN INDICATION
     Dosage: UNK, UNKNOWN
     Route: 048
  2. HUMIRA [Suspect]
     Active Substance: ADALIMUMAB
     Indication: CROHN^S DISEASE
     Dosage: UNK, UNKNOWN
     Route: 058
     Dates: end: 20160630

REACTIONS (3)
  - Pancreatic disorder [Unknown]
  - Crohn^s disease [Unknown]
  - Depression [Unknown]

NARRATIVE: CASE EVENT DATE: 2016
